FAERS Safety Report 23620845 (Version 2)
Quarter: 2024Q4

REPORT INFORMATION
  Report Type: Spontaneous
  Country: JP (occurrence: JP)
  Receive Date: 20240312
  Receipt Date: 20241018
  Transmission Date: 20250115
  Serious: Yes (Other)
  Sender: ROCHE
  Company Number: JP-CHUGAI-2023043260

PATIENT
  Age: 56 Year
  Sex: Female
  Weight: 65.7 kg

DRUGS (6)
  1. AVASTIN [Suspect]
     Active Substance: BEVACIZUMAB
     Indication: Hepatocellular carcinoma
     Dosage: 975 MILLIGRAM, ONCE/3WEEKS
     Route: 065
     Dates: start: 20230524, end: 20230827
  2. AVASTIN [Suspect]
     Active Substance: BEVACIZUMAB
     Dosage: 975 MILLIGRAM, ONCE/3WEEKS
     Route: 065
     Dates: start: 20240110
  3. TECENTRIQ [Suspect]
     Active Substance: ATEZOLIZUMAB
     Indication: Hepatocellular carcinoma
     Dosage: 1200 MILLIGRAM, ONCE/3WEEKS
     Route: 065
     Dates: start: 20230524, end: 20230827
  4. TECENTRIQ [Suspect]
     Active Substance: ATEZOLIZUMAB
     Dosage: 1200 MILLIGRAM, ONCE/3WEEKS
     Route: 065
     Dates: start: 20231018
  5. LIVACT [ISOLEUCINE;LEUCINE;VALINE] [Concomitant]
     Dosage: 12.45 GRAM/DAY
  6. ESOMEPRAZOLE [Concomitant]
     Active Substance: ESOMEPRAZOLE
     Dosage: 20MILLIGRAM/DAY

REACTIONS (2)
  - Hepatic encephalopathy [Recovered/Resolved]
  - Hyperammonaemia [Unknown]

NARRATIVE: CASE EVENT DATE: 20230827
